FAERS Safety Report 5908626-0 (Version None)
Quarter: 2008Q4

REPORT INFORMATION
  Report Type: 
  Country: None (occurrence: None)
  Receive Date: 20081006
  Receipt Date: 20080929
  Transmission Date: 20090506
  Serious: Yes (Other)
  Sender: FDA-Public Use
  Company Number: US-JNJFOC-20080801735

PATIENT
  Sex: Male
  Weight: 68.49 kg

DRUGS (30)
  1. DURAGESIC-100 [Suspect]
     Route: 062
  2. DURAGESIC-100 [Suspect]
     Route: 062
  3. DURAGESIC-100 [Suspect]
     Indication: PAIN IN EXTREMITY
     Route: 062
  4. DURAGESIC-100 [Suspect]
     Indication: NECK PAIN
     Route: 062
  5. DURAGESIC-100 [Suspect]
     Indication: BACK PAIN
     Route: 062
  6. ACTIQ [Suspect]
     Route: 048
  7. ACTIQ [Suspect]
     Route: 048
  8. ACTIQ [Suspect]
     Route: 048
  9. ACTIQ [Suspect]
     Route: 048
  10. ACTIQ [Suspect]
     Route: 048
  11. ACTIQ [Suspect]
     Route: 048
  12. ACTIQ [Suspect]
     Indication: PAIN IN EXTREMITY
     Route: 048
  13. ACTIQ [Suspect]
     Indication: NECK PAIN
     Route: 048
  14. ACTIQ [Suspect]
     Indication: BACK PAIN
     Route: 048
  15. CELEBREX [Concomitant]
  16. LEXAPRO [Concomitant]
  17. LEXAPRO [Concomitant]
  18. LEXAPRO [Concomitant]
  19. CYMBALTA [Concomitant]
  20. CYMBALTA [Concomitant]
  21. CYMBALTA [Concomitant]
  22. LYRICA [Concomitant]
  23. WELLBUTRIN [Concomitant]
  24. WELLBUTRIN [Concomitant]
     Dosage: START DATE MONTH WAS JULY 2006
  25. PROVIGIL [Concomitant]
  26. CLONAZEPAM [Concomitant]
  27. OXYCONTIN [Concomitant]
  28. MORPHINE SULFATE [Concomitant]
  29. MORPHINE SULFATE [Concomitant]
  30. MORPHINE SULFATE [Concomitant]

REACTIONS (6)
  - ANXIETY [None]
  - DEPRESSION [None]
  - DRUG DEPENDENCE [None]
  - FALL [None]
  - SEDATION [None]
  - WRONG TECHNIQUE IN DRUG USAGE PROCESS [None]
